FAERS Safety Report 13240486 (Version 1)
Quarter: 2017Q1

REPORT INFORMATION
  Report Type: Spontaneous
  Country: US (occurrence: US)
  Receive Date: 20170216
  Receipt Date: 20170216
  Transmission Date: 20170428
  Serious: No
  Sender: FDA-Public Use
  Company Number: US-RELYPSA-RLY2016003706

PATIENT
  Sex: Female

DRUGS (14)
  1. VELTASSA [Suspect]
     Active Substance: PATIROMER
     Indication: HYPERKALAEMIA
     Dosage: 8.4 G, QD
     Route: 048
     Dates: start: 20160518
  2. ATORVASTATIN CALCIUM. [Concomitant]
     Active Substance: ATORVASTATIN CALCIUM
  3. GLIPIZIDE. [Concomitant]
     Active Substance: GLIPIZIDE
  4. GLYBURIDE. [Concomitant]
     Active Substance: GLYBURIDE
  5. RANITIDINE HCL [Concomitant]
     Active Substance: RANITIDINE HYDROCHLORIDE
  6. PLAVIX [Concomitant]
     Active Substance: CLOPIDOGREL BISULFATE
  7. COLACE [Concomitant]
     Active Substance: DOCUSATE SODIUM
  8. ASPIRIN. [Concomitant]
     Active Substance: ASPIRIN
  9. COREG [Concomitant]
     Active Substance: CARVEDILOL
  10. CARVEDILOL. [Concomitant]
     Active Substance: CARVEDILOL
  11. CALCIUM ACETATE. [Concomitant]
     Active Substance: CALCIUM ACETATE
  12. AMLODIPINE BESYLATE. [Concomitant]
     Active Substance: AMLODIPINE BESYLATE
  13. NEXIUM [Concomitant]
     Active Substance: ESOMEPRAZOLE MAGNESIUM
  14. RAMIPRIL. [Concomitant]
     Active Substance: RAMIPRIL

REACTIONS (2)
  - Treatment noncompliance [Unknown]
  - Drug ineffective [Unknown]

NARRATIVE: CASE EVENT DATE: 2016
